FAERS Safety Report 14839035 (Version 2)
Quarter: 2018Q4

REPORT INFORMATION
  Report Type: Spontaneous
  Country: BE (occurrence: BE)
  Receive Date: 20180502
  Receipt Date: 20181228
  Transmission Date: 20190204
  Serious: Yes (Other)
  Sender: FDA-Public Use
  Company Number: BE-PFIZER INC-2018173856

PATIENT
  Age: 25 Year
  Sex: Female
  Weight: 50 kg

DRUGS (4)
  1. ENTYVIO [Suspect]
     Active Substance: VEDOLIZUMAB
     Indication: COLITIS ULCERATIVE
     Dosage: UNK
  2. BUDENOFALK [Concomitant]
     Active Substance: BUDESONIDE
     Dosage: IN ALTERNATING DOSES
     Route: 048
  3. MEDROL [METHYLPREDNISOLONE] [Concomitant]
     Dosage: 24
     Route: 048
  4. TOFACITINIB CITRATE [Suspect]
     Active Substance: TOFACITINIB CITRATE
     Indication: COLITIS ULCERATIVE
     Dosage: 10 MG, 2X/DAY
     Dates: start: 20141119, end: 20161220

REACTIONS (3)
  - Breast cancer [Unknown]
  - Neuropathy peripheral [Unknown]
  - Condition aggravated [Recovering/Resolving]

NARRATIVE: CASE EVENT DATE: 20180410
